FAERS Safety Report 20582040 (Version 1)
Quarter: 2022Q1

REPORT INFORMATION
  Report Type: Spontaneous
  Country: US (occurrence: US)
  Receive Date: 20220311
  Receipt Date: 20220311
  Transmission Date: 20220423
  Serious: No
  Sender: FDA-Public Use
  Company Number: US-GSKCCFUS-Case-01317231_AE-76650

PATIENT
  Sex: Female

DRUGS (1)
  1. MEPRON [Suspect]
     Active Substance: ATOVAQUONE
     Indication: Product used for unknown indication
     Dosage: UNK
     Dates: start: 202201

REACTIONS (1)
  - Contusion [Unknown]
